FAERS Safety Report 7561185-1 (Version None)
Quarter: 2011Q2

REPORT INFORMATION
  Report Type: 
  Country: None (occurrence: None)
  Receive Date: 20110621
  Receipt Date: 20110310
  Transmission Date: 20111010
  Serious: No
  Sender: FDA-Public Use
  Company Number: US-ASTRAZENECA-2011SE05536

PATIENT
  Age: 46 Year
  Sex: Female

DRUGS (1)
  1. PULMICORT FLEXHALER [Suspect]
     Indication: ASTHMA
     Dosage: TOTAL DAILY DOSE 320 MCG, FREQUENCY BID
     Route: 055
     Dates: start: 20070101

REACTIONS (1)
  - CONDITION AGGRAVATED [None]
